FAERS Safety Report 12637459 (Version 1)
Quarter: 2016Q3

REPORT INFORMATION
  Report Type: Spontaneous
  Country: US (occurrence: US)
  Receive Date: 20160809
  Receipt Date: 20160809
  Transmission Date: 20161109
  Serious: No
  Sender: FDA-Public Use
  Company Number: US-BEH-2016062738

PATIENT
  Age: 69 Year
  Sex: Male
  Weight: 90 kg

DRUGS (28)
  1. NORMAL SALINE [Concomitant]
     Active Substance: SODIUM CHLORIDE
  2. CELEBREX [Concomitant]
     Active Substance: CELECOXIB
  3. VENTOLIN [Concomitant]
     Active Substance: ALBUTEROL SULFATE
  4. PRIVIGEN [Suspect]
     Active Substance: HUMAN IMMUNOGLOBULIN G
     Indication: POLYNEUROPATHY IN MALIGNANT DISEASE
     Route: 042
  5. SYNTHROID [Concomitant]
     Active Substance: LEVOTHYROXINE SODIUM
  6. HCTZ [Concomitant]
     Active Substance: HYDROCHLOROTHIAZIDE
  7. VITAMIN D [Concomitant]
     Active Substance: CHOLECALCIFEROL
  8. DILTIAZEM. [Concomitant]
     Active Substance: DILTIAZEM
  9. CLONAZEPAM. [Concomitant]
     Active Substance: CLONAZEPAM
  10. PRIVIGEN [Suspect]
     Active Substance: HUMAN IMMUNOGLOBULIN G
     Route: 042
  11. DIPHENHYDRAMINE. [Concomitant]
     Active Substance: DIPHENHYDRAMINE
  12. IBUPROFEN. [Concomitant]
     Active Substance: IBUPROFEN
  13. AXIRON [Concomitant]
     Active Substance: TESTOSTERONE
  14. DETROL [Concomitant]
     Active Substance: TOLTERODINE TARTRATE
  15. ALPHAGAN P [Concomitant]
     Active Substance: BRIMONIDINE TARTRATE
  16. PRIVIGEN [Suspect]
     Active Substance: HUMAN IMMUNOGLOBULIN G
     Route: 042
  17. SODIUM CHLORIDE. [Concomitant]
     Active Substance: SODIUM CHLORIDE
  18. EPIPEN [Concomitant]
     Active Substance: EPINEPHRINE
  19. XALATAN [Concomitant]
     Active Substance: LATANOPROST
  20. PULMICORT TURBUHALER [Concomitant]
     Active Substance: BUDESONIDE
  21. ACETAMINOPHEN. [Concomitant]
     Active Substance: ACETAMINOPHEN
  22. LIDOCAINE. [Concomitant]
     Active Substance: LIDOCAINE
  23. PREVACID [Concomitant]
     Active Substance: LANSOPRAZOLE
  24. PRIVIGEN [Suspect]
     Active Substance: HUMAN IMMUNOGLOBULIN G
     Route: 042
  25. HEPARIN [Concomitant]
     Active Substance: HEPARIN SODIUM
  26. SINGULAIR [Concomitant]
     Active Substance: MONTELUKAST SODIUM
  27. ASPIRIN. [Concomitant]
     Active Substance: ASPIRIN
  28. FLOMAX [Concomitant]
     Active Substance: TAMSULOSIN HYDROCHLORIDE

REACTIONS (3)
  - Chills [Unknown]
  - Weight increased [Unknown]
  - Headache [Unknown]

NARRATIVE: CASE EVENT DATE: 20160313
